FAERS Safety Report 5670108-1 (Version None)
Quarter: 2008Q1

REPORT INFORMATION
  Report Type: 
  Country: None (occurrence: None)
  Receive Date: 20080312
  Receipt Date: 20080229
  Transmission Date: 20080703
  Serious: Yes (Death)
  Sender: FDA-Public Use
  Company Number: GXKR2008BR02201

PATIENT
  Age: 67 Year
  Sex: Female

DRUGS (4)
  1. AZATHIOPRINE [Suspect]
     Indication: IMMUNOSUPPRESSION
     Dosage: 150 MG/DAY
  2. CYCLOSPORINE [Suspect]
     Indication: IMMUNOSUPPRESSION
     Dosage: 100 MG/DAY
  3. PREDNISONE [Suspect]
     Indication: IMMUNOSUPPRESSION
     Dosage: 5 MG/DAY
  4. RAPAMYCIN (SIROLIMUS) [Suspect]

REACTIONS (8)
  - BLOOD LACTATE DEHYDROGENASE INCREASED [None]
  - DYSPNOEA [None]
  - EPSTEIN-BARR VIRUS INFECTION [None]
  - HERPES VIRUS INFECTION [None]
  - INFECTIOUS MONONUCLEOSIS [None]
  - LABORATORY TEST ABNORMAL [None]
  - PLEURAL EFFUSION [None]
  - PRIMARY EFFUSION LYMPHOMA [None]
